FAERS Safety Report 9949490 (Version 2)
Quarter: 2014Q1

REPORT INFORMATION
  Report Type: Report from Study
  Country: US (occurrence: US)
  Receive Date: 20140304
  Receipt Date: 20140304
  Transmission Date: 20141002
  Serious: Yes (Hospitalization)
  Sender: FDA-Public Use
  Company Number: US-ROCHE-1167173

PATIENT
  Age: 54 Year
  Sex: Female
  Weight: 56.75 kg

DRUGS (3)
  1. XELODA [Suspect]
     Indication: GALLBLADDER CANCER
     Route: 048
     Dates: start: 20120702, end: 20130201
  2. OXALIPLATIN [Suspect]
     Indication: PRODUCT USED FOR UNKNOWN INDICATION
     Route: 042
  3. CETUXIMAB [Concomitant]
     Route: 042

REACTIONS (12)
  - Small intestinal obstruction [Recovered/Resolved]
  - Constipation [Recovered/Resolved]
  - Abdominal discomfort [Not Recovered/Not Resolved]
  - Depression [Not Recovered/Not Resolved]
  - Abdominal pain upper [Unknown]
  - Pneumonia [Unknown]
  - Abdominal tenderness [Unknown]
  - Ascites [Unknown]
  - Rash macular [Unknown]
  - Abdominal pain [Unknown]
  - Fatigue [Unknown]
  - Nodule [Unknown]
